FAERS Safety Report 5863272-2 (Version None)
Quarter: 2008Q3

REPORT INFORMATION
  Report Type: 
  Country: None (occurrence: None)
  Receive Date: 20080828
  Receipt Date: 20080819
  Transmission Date: 20090109
  Serious: Yes (Other)
  Sender: FDA-Public Use
  Company Number: JP-ALLERGAN-0810485US

PATIENT
  Sex: Male

DRUGS (4)
  1. FLUOROMETHOLONE 0.1% EYEDROPS [Suspect]
     Indication: KERATITIS
     Route: 047
     Dates: start: 20030101, end: 20050901
  2. SODIUM HYALURONATE [Suspect]
     Indication: KERATITIS
     Route: 047
     Dates: start: 20030101, end: 20050901
  3. AUTOSERUM [Suspect]
     Indication: KERATITIS
     Route: 047
     Dates: start: 20030101, end: 20050901
  4. FK 506 [Concomitant]
     Indication: IMMUNOSUPPRESSION
     Route: 048
     Dates: end: 20040801

REACTIONS (3)
  - CORNEAL LESION [None]
  - KERATITIS [None]
  - KERATITIS HERPETIC [None]
